FAERS Safety Report 6875848-4 (Version None)
Quarter: 2010Q3

REPORT INFORMATION
  Report Type: 
  Country: None (occurrence: None)
  Receive Date: 20100727
  Receipt Date: 20071203
  Transmission Date: 20110219
  Serious: Yes (Hospitalization, Other)
  Sender: FDA-Public Use
  Company Number: US-PFIZER INC-2006146740

PATIENT
  Sex: Female
  Weight: 70.3 kg

DRUGS (6)
  1. CELEBREX [Suspect]
     Indication: ARTHRITIS
     Route: 048
     Dates: start: 20020201
  2. CELEBREX [Suspect]
     Indication: PAIN
  3. VIOXX [Suspect]
     Indication: OSTEOARTHRITIS
     Dosage: 25MG AND/OR 50MG ONCE OR TWICE DAILY
     Route: 048
     Dates: start: 20020218
  4. VIOXX [Suspect]
     Indication: PAIN
  5. LABETALOL HCL [Concomitant]
     Indication: HYPERTENSION
     Dates: start: 19970101
  6. PREMARIN [Concomitant]
     Indication: MENOPAUSE
     Dates: start: 19900101

REACTIONS (1)
  - CEREBROVASCULAR ACCIDENT [None]
